FAERS Safety Report 5066011-0 (Version None)
Quarter: 2006Q3

REPORT INFORMATION
  Report Type: 
  Country: None (occurrence: None)
  Receive Date: 20060731
  Receipt Date: 20060731
  Transmission Date: 20061208
  Serious: Yes (Hospitalization)
  Sender: FDA-Public Use
  Company Number: None

PATIENT
  Age: 22 Year
  Sex: Male

DRUGS (2)
  1. TEGRETOL-XR [Suspect]
     Indication: GRAND MAL CONVULSION
     Dosage: 800 MG BID PO, AT LEAST 2 YRS AGO
     Route: 048
     Dates: end: 20060516
  2. NEURONTIN [Suspect]
     Indication: TREMOR
     Dosage: 300 MG PO TID, MORE RECENT
     Route: 048

REACTIONS (5)
  - ABDOMINAL PAIN [None]
  - BACK PAIN [None]
  - CHEST PAIN [None]
  - LIVER FUNCTION TEST ABNORMAL [None]
  - MUSCULOSKELETAL CHEST PAIN [None]
